FAERS Safety Report 8392415-4 (Version None)
Quarter: 2012Q2

REPORT INFORMATION
  Report Type: 
  Country: None (occurrence: None)
  Receive Date: 20120529
  Receipt Date: 20120521
  Transmission Date: 20120825
  Serious: No
  Sender: FDA-Public Use
  Company Number: US-BAYER-2012-051373

PATIENT

DRUGS (3)
  1. CARISOPRODOL [Concomitant]
  2. NAPROXEN SODIUM [Suspect]
     Indication: HEADACHE
     Dosage: 4 TABLETS
     Route: 048
  3. SKELAXIN [Concomitant]

REACTIONS (1)
  - HEADACHE [None]
